FAERS Safety Report 15650989 (Version 1)
Quarter: 2018Q4

REPORT INFORMATION
  Report Type: Spontaneous
  Country: US (occurrence: US)
  Receive Date: 20181123
  Receipt Date: 20181123
  Transmission Date: 20190205
  Serious: No
  Sender: FDA-Public Use
  Company Number: US-JNJFOC-20181105865

PATIENT
  Sex: Female
  Weight: 120.2 kg

DRUGS (1)
  1. PROPULSID [Suspect]
     Active Substance: CISAPRIDE
     Indication: GASTROOESOPHAGEAL REFLUX DISEASE
     Route: 048
     Dates: end: 2000

REACTIONS (3)
  - Wrong technique in product usage process [Unknown]
  - Overweight [Unknown]
  - Gastrooesophageal reflux disease [Unknown]
